FAERS Safety Report 17963706 (Version 1)
Quarter: 2020Q2

REPORT INFORMATION
  Report Type: Spontaneous
  Country: CN (occurrence: CN)
  Receive Date: 20200630
  Receipt Date: 20200630
  Transmission Date: 20200714
  Serious: Yes (Hospitalization)
  Sender: FDA-Public Use
  Company Number: CN-PFIZER INC-2020246988

PATIENT
  Age: 73 Year
  Sex: Male
  Weight: 49 kg

DRUGS (2)
  1. ANZATAX (PACLITAXEL) [Suspect]
     Active Substance: PACLITAXEL
     Indication: GASTRIC CANCER
     Dosage: 180 MG, 1X/DAY (AT DAY 1)
     Route: 041
     Dates: start: 20200421, end: 20200421
  2. WEI KANG DA (GIMERACIL/OTERACIL POTASSIUM/TEGAFUR) [Suspect]
     Active Substance: GIMERACIL\OTERACIL\TEGAFUR
     Indication: GASTRIC CANCER
     Dosage: 50 MG, 2X/DAY (FROM DAY 1 TO DAY 14)
     Route: 048
     Dates: start: 20200421, end: 20200429

REACTIONS (4)
  - Rash [Recovering/Resolving]
  - Product use in unapproved indication [Unknown]
  - Drug eruption [Recovering/Resolving]
  - Off label use [Unknown]

NARRATIVE: CASE EVENT DATE: 20200429
